FAERS Safety Report 6877458-1 (Version None)
Quarter: 2010Q3

REPORT INFORMATION
  Report Type: 
  Country: None (occurrence: None)
  Receive Date: 20100727
  Receipt Date: 20100105
  Transmission Date: 20110219
  Serious: No
  Sender: FDA-Public Use
  Company Number: US-ABBOTT-10P-163-0617734-00

PATIENT
  Sex: Female
  Weight: 58.112 kg

DRUGS (6)
  1. SYNTHROID [Suspect]
     Indication: HYPOTHYROIDISM
     Dates: start: 19920101, end: 20091001
  2. SYNTHROID [Suspect]
     Dates: start: 20091001, end: 20091224
  3. SYNTHROID [Suspect]
     Dates: start: 20091225
  4. VIT C [Concomitant]
     Indication: PRODUCT USED FOR UNKNOWN INDICATION
  5. VIT D [Concomitant]
     Indication: PRODUCT USED FOR UNKNOWN INDICATION
  6. CALCIUM [Concomitant]
     Indication: PRODUCT USED FOR UNKNOWN INDICATION

REACTIONS (5)
  - AUTOIMMUNE THYROIDITIS [None]
  - DEPRESSION [None]
  - FATIGUE [None]
  - HYPOAESTHESIA ORAL [None]
  - PARAESTHESIA ORAL [None]
